FAERS Safety Report 8892160 (Version 1)
Quarter: 2012Q4

REPORT INFORMATION
  Report Type: 
  Country: US (occurrence: US)
  Receive Date: 20121107
  Receipt Date: 20121107
  Transmission Date: 20130627
  Serious: No
  Sender: FDA-Public Use
  Company Number: US-AMGEN-USASP2011057860

PATIENT
  Age: 53 Year

DRUGS (8)
  1. ENBREL [Suspect]
     Indication: PRODUCT USED FOR UNKNOWN INDICATION
     Dosage: 50 mg, qwk
  2. ZOCOR [Concomitant]
     Dosage: 10 mg, UNK
  3. METFORMIN [Concomitant]
     Dosage: 500 mg, UNK
  4. ANTIOXIDANT                        /02147801/ [Concomitant]
     Dosage: UNK
  5. GLUCOSAMINE CHONDROITIN            /01430901/ [Concomitant]
     Dosage: UNK
  6. ASPIRIN [Concomitant]
     Dosage: 81 mg, UNK
  7. FISH OIL [Concomitant]
     Dosage: UNK
  8. DHEA [Concomitant]
     Dosage: 10 mg, UNK

REACTIONS (2)
  - Wound drainage [Unknown]
  - Fungal infection [Unknown]
